FAERS Safety Report 10190797 (Version 2)
Quarter: 2014Q2

REPORT INFORMATION
  Report Type: Report from Study
  Country: JP (occurrence: JP)
  Receive Date: 20140523
  Receipt Date: 20140611
  Transmission Date: 20141212
  Serious: Yes (Other)
  Sender: FDA-Public Use
  Company Number: PHHY2014JP058044

PATIENT
  Age: 61 Year
  Sex: Female

DRUGS (7)
  1. AMN107 [Suspect]
     Indication: CHRONIC MYELOID LEUKAEMIA
     Dosage: 400 MG, BID
     Route: 048
     Dates: start: 20101208
  2. ADALAT [Concomitant]
     Dosage: 20 MG, UNK
     Route: 048
  3. OMEPRAL [Concomitant]
     Dosage: 20 MG, UNK
     Route: 048
  4. GASMOTIN [Concomitant]
     Dosage: 15 MG, UNK
     Route: 048
  5. MUCOSTA [Concomitant]
     Dosage: 300 MG, UNK
     Route: 048
  6. MAGLAX [Concomitant]
     Dosage: 750 MG, UNK
     Route: 048
  7. GLYCYRON [Concomitant]
     Route: 048

REACTIONS (2)
  - Blood potassium decreased [Unknown]
  - Lymphocyte count decreased [Unknown]
